FAERS Safety Report 12109754 (Version 1)
Quarter: 2016Q1

REPORT INFORMATION
  Report Type: Spontaneous
  Country: US (occurrence: None)
  Receive Date: 20160223
  Receipt Date: 20160223
  Transmission Date: 20160526
  Serious: No
  Sender: FDA-Public Use
  Company Number: None

PATIENT
  Age: 33 Year
  Sex: Female
  Weight: 115.67 kg

DRUGS (8)
  1. LEVOTHYROXINE. [Concomitant]
     Active Substance: LEVOTHYROXINE
  2. OMEPRAZOLE. [Concomitant]
     Active Substance: OMEPRAZOLE
  3. WALGREEN^S ESSENTIAL ONE DAILY ADULT MULTIVITAMIN [Concomitant]
  4. METOPROLOL TARTRATE 25 MG MYLAN [Suspect]
     Active Substance: METOPROLOL TARTRATE
     Indication: HEART RATE IRREGULAR
     Dosage: MORE THAN 10 YEARS 1 TABLET TWICE DAILY TAKEN BY MOUTH
     Route: 048
  5. CELEBREX [Concomitant]
     Active Substance: CELECOXIB
  6. VEGETARIAN GLUCOSAMINE [Concomitant]
  7. LAMOTRIGINE. [Concomitant]
     Active Substance: LAMOTRIGINE
  8. TRAZODONE [Concomitant]
     Active Substance: TRAZODONE HYDROCHLORIDE

REACTIONS (3)
  - Hallucination [None]
  - Tachycardia [None]
  - Delusion [None]

NARRATIVE: CASE EVENT DATE: 20160212
